FAERS Safety Report 10045431 (Version 1)
Quarter: 2014Q1

REPORT INFORMATION
  Report Type: Spontaneous
  Country: US (occurrence: None)
  Receive Date: 20140306
  Receipt Date: 20140306
  Transmission Date: 20141002
  Serious: Yes (Hospitalization)
  Sender: FDA-Public Use
  Company Number: 163-21880-13064211

PATIENT
  Age: 86 Year
  Sex: Female

DRUGS (9)
  1. REVLIMID [Suspect]
     Indication: PLASMA CELL MYELOMA
     Dosage: 25 MG, 21 IN 21 D, PO
     Route: 048
     Dates: start: 20130225
  2. B COMPLEX (BECOSYN FORTE) [Concomitant]
  3. BABY ASPIRIN (ACETYLSALICYLIC ACID) [Concomitant]
  4. CHOLESTYRAMINE (COLESTYRAMINE) [Concomitant]
  5. CIPROFLOXACIN HCL (CIPROFLOXACIN HYDROCHLORIDE) [Concomitant]
  6. FERREX 28 (POLYSACCHARIDE-IRON COMPLEX) [Concomitant]
  7. FOLIC ACID (FOLIC ACID) [Concomitant]
  8. JANUVIA (SITAGLIPTIN PHOSPHATE) [Concomitant]
  9. LEVOTHYROXINE SODIUM (LEVOTHYROXINE SODIUM) [Concomitant]

REACTIONS (1)
  - Neck pain [None]
